FAERS Safety Report 10981791 (Version 1)
Quarter: 2015Q1

REPORT INFORMATION
  Report Type: Spontaneous
  Country: US (occurrence: None)
  Receive Date: 20150227
  Receipt Date: 20150227
  Transmission Date: 20150721
  Serious: Yes (Other)
  Sender: FDA-Public Use
  Company Number: LMI-2014-00081

PATIENT
  Sex: Male

DRUGS (12)
  1. DEFINITY [Suspect]
     Active Substance: PERFLUTREN
     Indication: ECHOCARDIOGRAM
     Dosage: (PRODUCT PREPARATION (DILUTED OR UNDILUTED) NOT PROVIDED) (1 ML, 1 IN 1 D), INTRAVENOUS BOLUS
     Route: 040
     Dates: start: 20140225, end: 20140225
  2. LAMICTAL [Concomitant]
     Active Substance: LAMOTRIGINE
  3. DEFINITY [Suspect]
     Active Substance: PERFLUTREN
     Indication: ECHOCARDIOGRAM
     Dosage: (PRODUCT PREPARATION (DILUTED OR UNDILUTED) NOT PROVIDED) (1 ML, 1 IN 1 D), INTRAVENOUS BOLUS
     Route: 040
     Dates: start: 20140225, end: 20140225
  4. VICTOZA [Concomitant]
     Active Substance: LIRAGLUTIDE
  5. ATORVASTATIN [Concomitant]
     Active Substance: ATORVASTATIN
  6. INSULIN [Concomitant]
     Active Substance: INSULIN NOS
  7. LISINOPRIL. [Concomitant]
     Active Substance: LISINOPRIL
  8. LOVAZA [Concomitant]
     Active Substance: OMEGA-3-ACID ETHYL ESTERS
  9. PRAMIPEXOLE DIHYDROCHLORIDE. [Concomitant]
     Active Substance: PRAMIPEXOLE DIHYDROCHLORIDE
  10. WELLBUTRIN [Concomitant]
     Active Substance: BUPROPION HYDROCHLORIDE
  11. NUVIGIL [Concomitant]
     Active Substance: ARMODAFINIL
  12. DEPLIN (CALCIUM LEVOMEFOLATE) [Concomitant]

REACTIONS (7)
  - Hypotension [None]
  - Hypersensitivity [None]
  - Throat tightness [None]
  - Pruritus [None]
  - Urticaria [None]
  - Tachycardia [None]
  - Presyncope [None]

NARRATIVE: CASE EVENT DATE: 20140225
